FAERS Safety Report 8113903-1 (Version None)
Quarter: 2012Q1

REPORT INFORMATION
  Report Type: 
  Country: None (occurrence: None)
  Receive Date: 20120203
  Receipt Date: 20120120
  Transmission Date: 20120608
  Serious: Yes (Other)
  Sender: FDA-Public Use
  Company Number: US-ROCHE-1032507

PATIENT
  Sex: Female

DRUGS (9)
  1. ADVAIR DISKUS 100/50 [Concomitant]
  2. MUCINEX [Concomitant]
  3. TOBI [Suspect]
     Dates: start: 20111230
  4. XOLAIR [Suspect]
     Indication: PRODUCT USED FOR UNKNOWN INDICATION
     Dates: end: 20111201
  5. XOLAIR [Suspect]
     Dates: start: 20111230
  6. SPIRIVA [Concomitant]
  7. TOBI [Suspect]
     Indication: BRONCHIECTASIS
     Dates: start: 20111201, end: 20111201
  8. OXYGEN [Concomitant]
  9. ALBUTEROL [Concomitant]

REACTIONS (4)
  - NASOPHARYNGITIS [None]
  - PRODUCTIVE COUGH [None]
  - BRONCHITIS [None]
  - DYSPNOEA [None]
